FAERS Safety Report 7201509-8 (Version None)
Quarter: 2010Q4

REPORT INFORMATION
  Report Type: 
  Country: None (occurrence: None)
  Receive Date: 20101216
  Receipt Date: 20101207
  Transmission Date: 20110411
  Serious: Yes (Congenital Anomaly)
  Sender: FDA-Public Use
  Company Number: 2010US004976

PATIENT
  Age: 4 Year
  Sex: Male
  Weight: 3 kg

DRUGS (2)
  1. PROGRAF [Suspect]
     Indication: DRUG EXPOSURE DURING PREGNANCY
     Dosage: 4 MG, BID, ORAL; 4-6 MG TWICE DAILY, ORAL
     Route: 048
     Dates: end: 20050101
  2. PROGRAF [Suspect]
     Indication: DRUG EXPOSURE DURING PREGNANCY
     Dosage: 4 MG, BID, ORAL; 4-6 MG TWICE DAILY, ORAL
     Route: 048
     Dates: start: 20050101, end: 20050719

REACTIONS (4)
  - APGAR SCORE LOW [None]
  - BICUSPID AORTIC VALVE [None]
  - DILATATION VENTRICULAR [None]
  - MATERNAL DRUGS AFFECTING FOETUS [None]
